FAERS Safety Report 4658424-3 (Version None)
Quarter: 2005Q2

REPORT INFORMATION
  Report Type: 
  Country: None (occurrence: None)
  Receive Date: 20050510
  Receipt Date: 20050510
  Transmission Date: 20051028
  Serious: Yes (Other)
  Sender: FDA-Public Use
  Company Number: None

PATIENT
  Age: 20 Year
  Sex: Male
  Weight: 62.1428 kg

DRUGS (4)
  1. ZYRTEC-D 12 HOUR [Suspect]
     Indication: RHINITIS ALLERGIC
     Dosage: ONE  PO BID
     Route: 048
     Dates: start: 20050408, end: 20050414
  2. NASONEX [Concomitant]
  3. SINGULAIR [Concomitant]
  4. ALBUTEROL INHAL [Concomitant]

REACTIONS (2)
  - TENDERNESS [None]
  - TESTICULAR DISORDER [None]
